FAERS Safety Report 15097940 (Version 1)
Quarter: 2018Q3

REPORT INFORMATION
  Report Type: Spontaneous
  Country: JP (occurrence: JP)
  Receive Date: 20180702
  Receipt Date: 20180702
  Transmission Date: 20181010
  Serious: Yes (Other)
  Sender: FDA-Public Use
  Company Number: JP-PFIZER INC-2018261320

PATIENT
  Age: 12 Year
  Sex: Male

DRUGS (4)
  1. MIZORIBINE [Concomitant]
     Active Substance: MIZORIBINE
     Dosage: UNK
  2. PREDNISOLONE. [Concomitant]
     Active Substance: PREDNISOLONE
     Dosage: UNK
  3. METHYLPREDNISOLONE SODIUM SUCCINATE. [Suspect]
     Active Substance: METHYLPREDNISOLONE SODIUM SUCCINATE
     Dosage: 1 G, DAILY (3 CONSECUTIVE DAYS COMPRISING ONE COURSE)
  4. HEPARIN [Concomitant]
     Active Substance: HEPARIN SODIUM
     Dosage: 10 UNITS/KG/H

REACTIONS (3)
  - Myocardial ischaemia [Unknown]
  - Chest pain [Recovered/Resolved]
  - Blood pressure diastolic decreased [Unknown]
